FAERS Safety Report 5884761-0 (Version None)
Quarter: 2008Q3

REPORT INFORMATION
  Report Type: 
  Country: None (occurrence: None)
  Receive Date: 20080916
  Receipt Date: 20080909
  Transmission Date: 20090109
  Serious: Yes (Death)
  Sender: FDA-Public Use
  Company Number: JP-AVENTIS-200812250JP

PATIENT
  Age: 70 Year
  Sex: Male
  Weight: 51 kg

DRUGS (3)
  1. TAXOTERE [Suspect]
     Route: 041
     Dates: start: 20050411, end: 20050502
  2. FLUOROURACIL [Concomitant]
     Route: 041
     Dates: start: 20050406, end: 20050506
  3. RADIATION [Concomitant]
     Dosage: DOSE: 52 GY
     Dates: start: 20050406, end: 20050516

REACTIONS (1)
  - INTERSTITIAL LUNG DISEASE [None]
